FAERS Safety Report 4623291-0 (Version None)
Quarter: 2005Q1

REPORT INFORMATION
  Report Type: 
  Country: None (occurrence: None)
  Receive Date: 20050329
  Receipt Date: 20050317
  Transmission Date: 20050727
  Serious: Yes (Hospitalization)
  Sender: FDA-Public Use
  Company Number: 200502269

PATIENT
  Age: 43 Year
  Sex: Female

DRUGS (4)
  1. BOTOX [Suspect]
     Indication: ARTHROPATHY
     Dosage: 300 UNITS ONCE IM
     Route: 030
     Dates: start: 20041020
  2. BOTOX [Suspect]
     Indication: TORTICOLLIS
     Dosage: 300 UNITS ONCE IM
     Route: 030
     Dates: start: 20041020
  3. CELEXA [Concomitant]
  4. ZONEGRAN [Concomitant]

REACTIONS (2)
  - HALLUCINATION [None]
  - SCHIZOPHRENIA, PARANOID TYPE [None]
